FAERS Safety Report 4819535-2 (Version None)
Quarter: 2005Q4

REPORT INFORMATION
  Report Type: 
  Country: None (occurrence: None)
  Receive Date: 20051103
  Receipt Date: 20050718
  Transmission Date: 20060501
  Serious: Yes (Hospitalization)
  Sender: FDA-Public Use
  Company Number: PHEH2005US07990

PATIENT
  Age: 46 Year
  Sex: Female

DRUGS (3)
  1. DIOVAN [Suspect]
     Indication: HYPERTENSION
     Dosage: 160 MG, QD
     Route: 048
     Dates: start: 20020101
  2. CHROMAGEN [Concomitant]
     Indication: ANAEMIA
     Dates: start: 20041229, end: 20050128
  3. VAGISIL [Concomitant]
     Indication: VAGINAL INFECTION
     Dosage: UNK, QHS
     Route: 067
     Dates: start: 20041229, end: 20050105

REACTIONS (6)
  - ANAEMIA [None]
  - BLOOD POTASSIUM DECREASED [None]
  - BLOOD PRESSURE INADEQUATELY CONTROLLED [None]
  - BURNING SENSATION [None]
  - HAEMOGLOBIN DECREASED [None]
  - VISION BLURRED [None]
